FAERS Safety Report 6358779-8 (Version None)
Quarter: 2009Q3

REPORT INFORMATION
  Report Type: 
  Country: None (occurrence: None)
  Receive Date: 20090916
  Receipt Date: 20090722
  Transmission Date: 20100115
  Serious: No
  Sender: FDA-Public Use
  Company Number: US-ABBOTT-09P-163-0587565-00

PATIENT
  Age: 46 Year
  Sex: Male
  Weight: 102.15 kg

DRUGS (3)
  1. TRILIPIX [Suspect]
     Indication: BLOOD TRIGLYCERIDES INCREASED
     Route: 048
     Dates: start: 20090710
  2. TRILIPIX [Suspect]
     Indication: BLOOD CHOLESTEROL INCREASED
  3. LOTREL [Concomitant]
     Indication: HYPERTENSION
     Route: 048

REACTIONS (1)
  - RASH MACULAR [None]
